FAERS Safety Report 7290549-9 (Version None)
Quarter: 2011Q1

REPORT INFORMATION
  Report Type: 
  Country: None (occurrence: None)
  Receive Date: 20110214
  Receipt Date: 20110212
  Transmission Date: 20110831
  Serious: No
  Sender: FDA-Public Use
  Company Number: US-PFIZER INC-2011031619

PATIENT
  Sex: Female
  Weight: 69.841 kg

DRUGS (13)
  1. CHANTIX [Suspect]
     Dosage: 1 MG, 2X/DAY
     Route: 048
  2. SIMVASTATIN [Concomitant]
     Dosage: 20 MG, 1X/DAY
  3. FENOFIBRATE [Concomitant]
     Dosage: 134 MG, 1X/DAY
     Route: 048
  4. ACETYLSALICYLIC ACID [Concomitant]
     Dosage: UNK
  5. ENALAPRIL [Concomitant]
     Dosage: 20 MG, 2X/DAY
     Route: 048
  6. DETROL LA [Concomitant]
     Dosage: 4 MG, 1X/DAY
     Route: 048
  7. VITAMIN E [Concomitant]
     Dosage: UNK
  8. AMLODIPINE [Concomitant]
     Dosage: 10 MG, 1X/DAY
     Route: 048
  9. OYSTER SHELL CALCIUM [Concomitant]
     Dosage: 500 MG, 2X/DAY
     Route: 048
  10. ATENOLOL [Concomitant]
     Dosage: 100 MG, 1X/DAY
     Route: 048
  11. VITAMIN D [Concomitant]
     Dosage: UNK
  12. FISH OIL [Concomitant]
     Dosage: UNK
  13. CHANTIX [Suspect]
     Indication: SMOKING CESSATION THERAPY
     Dosage: 0.5 MG, 1X/DAY
     Route: 048
     Dates: start: 20110201

REACTIONS (3)
  - MALAISE [None]
  - VOMITING [None]
  - NAUSEA [None]
